FAERS Safety Report 7826674-0 (Version None)
Quarter: 2011Q4

REPORT INFORMATION
  Report Type: 
  Country: None (occurrence: None)
  Receive Date: 20111020
  Receipt Date: 20111014
  Transmission Date: 20120403
  Serious: Yes (Death, Hospitalization, Other)
  Sender: FDA-Public Use
  Company Number: US-CELGENEUS-163-21880-11082033

PATIENT
  Sex: Male
  Weight: 93 kg

DRUGS (23)
  1. ACYCLOVIR [Concomitant]
     Route: 065
  2. DECADRON [Concomitant]
     Route: 065
  3. INSULIN [Concomitant]
     Route: 065
  4. METFORMIN HCL [Concomitant]
     Route: 065
  5. NACL [Concomitant]
     Route: 065
  6. POTASSIUM CHLORIDE [Concomitant]
     Route: 065
  7. EXPERIMENTAL CHEMO [Concomitant]
     Route: 065
  8. SUPER B100 [Concomitant]
     Route: 065
  9. REVLIMID [Suspect]
     Indication: MULTIPLE MYELOMA
     Dosage: 25 MILLIGRAM
     Route: 048
     Dates: start: 20110707
  10. LASIX [Concomitant]
     Route: 065
  11. OXYCONTIN [Concomitant]
     Route: 065
  12. LYRICA [Concomitant]
     Route: 065
  13. TRAMADOL HCL [Concomitant]
     Route: 065
  14. AMITRIPTYLINE HCL [Concomitant]
     Route: 065
  15. DEXILANT [Concomitant]
     Route: 065
  16. ZOCOR [Concomitant]
     Route: 065
  17. CELEBREX [Concomitant]
     Route: 065
  18. ARIXTRA [Concomitant]
     Route: 065
  19. BACTRIM [Concomitant]
     Route: 065
  20. ULTRAM [Concomitant]
     Route: 065
  21. SENOKOT [Concomitant]
     Route: 065
  22. MULTI-VITAMINS [Concomitant]
     Route: 065
  23. MARINOL [Concomitant]
     Route: 065

REACTIONS (8)
  - SEPSIS [None]
  - HIP FRACTURE [None]
  - HYPONATRAEMIA [None]
  - PLATELET COUNT DECREASED [None]
  - DEATH [None]
  - PANCYTOPENIA [None]
  - NAUSEA [None]
  - VOMITING [None]
